FAERS Safety Report 9761552 (Version 1)
Quarter: 2013Q4

REPORT INFORMATION
  Report Type: Spontaneous
  Country: US (occurrence: US)
  Receive Date: 20131216
  Receipt Date: 20131216
  Transmission Date: 20140711
  Serious: No
  Sender: FDA-Public Use
  Company Number: US-ABBVIE-13P-163-1161700-00

PATIENT
  Age: 48 Year
  Sex: Female
  Weight: 72.19 kg

DRUGS (1)
  1. PROGESTERONE [Suspect]
     Indication: HORMONE REPLACEMENT THERAPY
     Route: 048
     Dates: start: 20131008, end: 20131021

REACTIONS (1)
  - Drug ineffective [Unknown]
